FAERS Safety Report 5868324-9 (Version None)
Quarter: 2008Q3

REPORT INFORMATION
  Report Type: 
  Country: None (occurrence: None)
  Receive Date: 20080903
  Receipt Date: 20080821
  Transmission Date: 20090109
  Serious: Yes (Life-Threatening, Hospitalization)
  Sender: FDA-Public Use
  Company Number: JP-BRISTOL-MYERS SQUIBB COMPANY-14215974

PATIENT
  Age: 68 Year
  Sex: Female

DRUGS (17)
  1. ABATACEPT [Suspect]
     Indication: RHEUMATOID ARTHRITIS
     Dosage: LAST DOSE ON 7MAY08 AND WITHDRAWN FROM STUDY ON 02JUN08
     Route: 041
     Dates: start: 20070925, end: 20080507
  2. RHEUMATREX [Concomitant]
     Indication: RHEUMATOID ARTHRITIS
     Route: 048
     Dates: start: 20061204, end: 20080531
  3. PREDNISOLONE [Concomitant]
     Indication: RHEUMATOID ARTHRITIS
     Route: 048
     Dates: start: 20071011, end: 20080531
  4. LOXONIN [Concomitant]
     Route: 048
     Dates: start: 20071030, end: 20080531
  5. MILTAX [Concomitant]
     Indication: RHEUMATOID ARTHRITIS
     Dates: start: 20061030, end: 20080531
  6. GASTER D [Concomitant]
     Indication: GASTRITIS PROPHYLAXIS
     Route: 048
     Dates: start: 20070626, end: 20080530
  7. FOLIAMIN [Concomitant]
     Indication: PROPHYLAXIS
     Dates: start: 20080220, end: 20080528
  8. LIPITOR [Concomitant]
     Indication: HYPERLIPIDAEMIA
     Route: 048
     Dates: end: 20080530
  9. ASPIRIN [Concomitant]
     Indication: CAROTID ARTERY OCCLUSION
     Route: 048
     Dates: end: 20080530
  10. KARY UNI [Concomitant]
     Indication: CATARACT
     Route: 031
     Dates: end: 20080529
  11. SANCOBA [Concomitant]
     Indication: MYODESOPSIA
     Route: 031
     Dates: end: 20080529
  12. HYALEIN [Concomitant]
     Indication: DRY EYE
     Route: 031
     Dates: end: 20080529
  13. AMOXAPINE [Concomitant]
     Indication: DEPRESSION
     Route: 048
     Dates: start: 20080123, end: 20080530
  14. ARTANE [Concomitant]
     Indication: DEPRESSION
     Route: 048
     Dates: start: 20080123, end: 20080530
  15. MEILAX [Concomitant]
     Indication: DEPRESSION
     Route: 048
     Dates: start: 20080528, end: 20080530
  16. MYSLEE [Concomitant]
     Indication: DEPRESSION
     Dates: start: 20080528, end: 20080530
  17. SEROQUEL [Concomitant]
     Indication: DEPRESSION
     Route: 048
     Dates: start: 20080528, end: 20080530

REACTIONS (4)
  - CEREBRAL INFARCTION [None]
  - ENCEPHALITIS [None]
  - PHARYNGEAL ABSCESS [None]
  - SEPSIS [None]
